FAERS Safety Report 5853808-X (Version None)
Quarter: 2008Q3

REPORT INFORMATION
  Report Type: 
  Country: None (occurrence: None)
  Receive Date: 20080822
  Receipt Date: 20080514
  Transmission Date: 20090109
  Serious: No
  Sender: FDA-Public Use
  Company Number: US-BAYER-200822748NA

PATIENT
  Age: 28 Year
  Sex: Female
  Weight: 52 kg

DRUGS (1)
  1. MIRENA [Suspect]
     Indication: CONTRACEPTION
     Route: 015
     Dates: start: 20071127, end: 20080418

REACTIONS (2)
  - PROCEDURAL PAIN [None]
  - VAGINAL HAEMORRHAGE [None]
